FAERS Safety Report 14016050 (Version 1)
Quarter: 2017Q3

REPORT INFORMATION
  Report Type: Spontaneous
  Country: US (occurrence: None)
  Receive Date: 20170927
  Receipt Date: 20170927
  Transmission Date: 20171128
  Serious: No
  Sender: FDA-Public Use
  Company Number: None

PATIENT
  Age: 74 Year
  Sex: Female
  Weight: 67.59 kg

DRUGS (5)
  1. COENZYME Q10 [Concomitant]
     Active Substance: UBIDECARENONE
  2. LOSARTAN. [Concomitant]
     Active Substance: LOSARTAN
  3. LEVOTHYROXINE. [Concomitant]
     Active Substance: LEVOTHYROXINE
  4. XIIDRA [Suspect]
     Active Substance: LIFITEGRAST
     Indication: DRY EYE
     Dosage: 1 DROP BED TIME, 1 DROP MORNING IN THE EYE
     Route: 047
     Dates: start: 20170304, end: 20170708
  5. FISH OIL [Concomitant]
     Active Substance: FISH OIL

REACTIONS (2)
  - Intentional product use issue [None]
  - Eye pain [None]

NARRATIVE: CASE EVENT DATE: 20170708
